FAERS Safety Report 6993096-4 (Version None)
Quarter: 2010Q3

REPORT INFORMATION
  Report Type: 
  Country: None (occurrence: None)
  Receive Date: 20100917
  Receipt Date: 20100422
  Transmission Date: 20110219
  Serious: No
  Sender: FDA-Public Use
  Company Number: US-ASTRAZENECA-2010SE18138

PATIENT
  Age: 63 Year
  Sex: Male
  Weight: 115.7 kg

DRUGS (8)
  1. SEROQUEL XR [Suspect]
     Indication: HALLUCINATION, AUDITORY
     Route: 048
     Dates: start: 20080101
  2. LIPITOR [Concomitant]
     Indication: BLOOD CHOLESTEROL INCREASED
     Route: 065
  3. ZOLOFT [Concomitant]
     Route: 065
  4. HYDROXYZINE [Concomitant]
     Indication: PRURITUS
     Route: 065
  5. CLARITIN [Concomitant]
     Indication: SEASONAL ALLERGY
     Route: 065
  6. CLONAZEPAM [Concomitant]
     Route: 065
  7. PROLIXIN [Concomitant]
     Indication: HALLUCINATION, AUDITORY
     Route: 065
  8. HYDROCODONE [Concomitant]
     Indication: ARTHRALGIA
     Route: 065

REACTIONS (5)
  - BLOOD CHOLESTEROL INCREASED [None]
  - BLOOD GLUCOSE INCREASED [None]
  - BLOOD TRIGLYCERIDES INCREASED [None]
  - PRURITUS [None]
  - WEIGHT INCREASED [None]
